FAERS Safety Report 10180789 (Version 1)
Quarter: 2014Q2

REPORT INFORMATION
  Report Type: Spontaneous
  Country: US (occurrence: US)
  Receive Date: 20140519
  Receipt Date: 20140519
  Transmission Date: 20141212
  Serious: No
  Sender: FDA-Public Use
  Company Number: US-AMGEN INC.-USASP2014014259

PATIENT
  Sex: Male

DRUGS (2)
  1. PROLIA [Suspect]
     Indication: PROPHYLAXIS
     Route: 065
  2. LUPRON [Concomitant]
     Indication: PROSTATE CANCER

REACTIONS (1)
  - Tooth disorder [Not Recovered/Not Resolved]
